FAERS Safety Report 9789959 (Version 1)
Quarter: 2013Q4

REPORT INFORMATION
  Report Type: Spontaneous
  Country: AU (occurrence: None)
  Receive Date: 20131227
  Receipt Date: 20131227
  Transmission Date: 20140711
  Serious: Yes (Other)
  Sender: FDA-Public Use
  Company Number: 2013000374

PATIENT
  Sex: Female

DRUGS (2)
  1. ACEON (PERINDOPRIL ERBUMINE) TABLET [Suspect]
     Indication: PRODUCT USED FOR UNKNOWN INDICATION
  2. ASPIRIN (ASPIRIN) [Concomitant]

REACTIONS (5)
  - Arrhythmia [None]
  - Atrial fibrillation [None]
  - Bradycardia [None]
  - Ventricular tachycardia [None]
  - Myalgia [None]
